FAERS Safety Report 17820802 (Version 1)
Quarter: 2020Q2

REPORT INFORMATION
  Report Type: Spontaneous
  Country: FR (occurrence: FR)
  Receive Date: 20200525
  Receipt Date: 20200525
  Transmission Date: 20200714
  Serious: Yes (Hospitalization)
  Sender: FDA-Public Use
  Company Number: FR-PFIZER INC-2020202112

PATIENT
  Age: 73 Year
  Sex: Male
  Weight: 73 kg

DRUGS (10)
  1. VERAPAMIL HYDROCHLOIRDE [Concomitant]
     Active Substance: VERAPAMIL HYDROCHLORIDE
     Dosage: UNK
  2. INNOHEP [Suspect]
     Active Substance: TINZAPARIN SODIUM
     Indication: ATRIAL FIBRILLATION
     Dosage: UNK
     Route: 058
     Dates: start: 20200312, end: 20200323
  3. ATORVASTATIN [Concomitant]
     Active Substance: ATORVASTATIN
     Dosage: UNK
  4. TAZOCILLINE [Suspect]
     Active Substance: PIPERACILLIN SODIUM\TAZOBACTAM SODIUM
     Indication: LUNG DISORDER
     Dosage: UNK
     Route: 042
     Dates: start: 20200304, end: 20200317
  5. ALDACTONE [Suspect]
     Active Substance: SPIRONOLACTONE
     Indication: PERICARDIAL EFFUSION
     Dosage: UNK
     Route: 048
     Dates: start: 20200310, end: 20200317
  6. VANCOMYCIN [Suspect]
     Active Substance: VANCOMYCIN
     Indication: LUNG DISORDER
     Dosage: UNK
     Route: 042
     Dates: start: 20200305, end: 20200320
  7. HEMIGOXINE NATIVELLE [Concomitant]
     Active Substance: DIGOXIN
     Dosage: UNK
  8. DIFFU K [Suspect]
     Active Substance: POTASSIUM CHLORIDE
     Indication: HYPOKALAEMIA
     Dosage: UNK
     Route: 048
     Dates: start: 20200306, end: 20200320
  9. LASILIX [FUROSEMIDE] [Suspect]
     Active Substance: FUROSEMIDE
     Indication: PERICARDIAL EFFUSION
     Dosage: UNK
     Route: 048
     Dates: start: 20200306, end: 20200320
  10. CIFLOX [CIPROFLOXACIN HYDROCHLORIDE] [Suspect]
     Active Substance: CIPROFLOXACIN HYDROCHLORIDE
     Indication: LUNG DISORDER
     Dosage: UNK
     Route: 048
     Dates: start: 20200301, end: 20200320

REACTIONS (1)
  - Acute kidney injury [Recovered/Resolved]

NARRATIVE: CASE EVENT DATE: 20200314
